FAERS Safety Report 22961300 (Version 2)
Quarter: 2025Q1

REPORT INFORMATION
  Report Type: Spontaneous
  Country: US (occurrence: US)
  Receive Date: 20230920
  Receipt Date: 20250307
  Transmission Date: 20250409
  Serious: No
  Sender: SANOFI AVENTIS
  Company Number: US-SA-2023SA275320

PATIENT
  Age: 63 Year
  Sex: Female
  Weight: 61.36 kg

DRUGS (3)
  1. DUPIXENT [Suspect]
     Active Substance: DUPILUMAB
     Indication: Dermatitis atopic
     Dosage: 300 MG, QOW
     Route: 058
     Dates: start: 20230811
  2. TACROLIMUS [Concomitant]
     Active Substance: TACROLIMUS
  3. ELIDEL [Concomitant]
     Active Substance: PIMECROLIMUS

REACTIONS (6)
  - Muscle spasms [Unknown]
  - Osteoporosis [Unknown]
  - Trigger finger [Unknown]
  - Pruritus [Unknown]
  - Oral herpes [Unknown]
  - Inappropriate schedule of product administration [Unknown]

NARRATIVE: CASE EVENT DATE: 20230101
